FAERS Safety Report 4885461-6 (Version None)
Quarter: 2005Q4

REPORT INFORMATION
  Report Type: 
  Country: None (occurrence: None)
  Receive Date: 20051216
  Receipt Date: 20050729
  Transmission Date: 20060501
  Serious: Yes (Other)
  Sender: FDA-Public Use
  Company Number: 2005108967

PATIENT
  Age: 58 Year
  Sex: Female

DRUGS (1)
  1. ARTHROTEC [Suspect]
     Indication: ILL-DEFINED DISORDER

REACTIONS (1)
  - HEPATITIS [None]
